FAERS Safety Report 4828563-2 (Version None)
Quarter: 2005Q4

REPORT INFORMATION
  Report Type: 
  Country: None (occurrence: None)
  Receive Date: 20051110
  Receipt Date: 20051019
  Transmission Date: 20060501
  Serious: Yes (Other)
  Sender: FDA-Public Use
  Company Number: 2005BH001753

PATIENT
  Age: 67 Year
  Sex: Female
  Weight: 43.9 kg

DRUGS (9)
  1. CLINOLEIC 20% (LIPID EMULSION) [Suspect]
     Indication: PSEUDOMYXOMA PERITONEI
     Dosage: 250 ML EVERY DAY; IV
     Route: 042
     Dates: start: 20050911, end: 20050913
  2. GLUCOSE (GLUCOSE) [Suspect]
     Indication: PSEUDOMYXOMA PERITONEI
     Dosage: 500 ML; EVERY DAY; IV
     Route: 042
     Dates: start: 20050911, end: 20050913
  3. GLUCOSE (GLUCOSE) [Suspect]
     Indication: PSEUDOMYXOMA PERITONEI
     Dosage: 500 MG; EVERY DAY; IV
     Route: 042
     Dates: start: 20050911, end: 20050913
  4. MAGNESIUM CHLORIDE ANHYDROUS (MAGNESIUM CHLORIDE ANHYDROUS) [Suspect]
     Indication: PSEUDOMYXOMA PERITONEI
     Dosage: EVERY DAY; IV
     Route: 042
     Dates: start: 20050911, end: 20050913
  5. POTASSIUM CHLORIDE [Suspect]
     Indication: PSEUDOMYXOMA PERITONEI
     Dosage: EVERY DAY; IV
     Route: 042
     Dates: start: 20050911, end: 20050913
  6. SODIUM CHLORIDE 0.9% [Suspect]
     Indication: PSEUDOMYXOMA PERITONEI
     Dosage: EVERY DAY; IV
     Route: 042
     Dates: start: 20050911, end: 20050913
  7. SODIUM GLYCEROPHOSPHATE (NO PREF. NAME) [Suspect]
     Dosage: EVERY DAY; IV
     Route: 042
     Dates: start: 20050911, end: 20050913
  8. TRAVASOL 10% [Suspect]
     Indication: PSEUDOMYXOMA PERITONEI
     Dosage: 85 GM; EVERY DAY; IV
     Route: 042
     Dates: start: 20050911, end: 20050913
  9. CALCIUM GLUCONATE [Suspect]
     Indication: PSEUDOMYXOMA PERITONEI
     Dosage: EVERY DAY; IV
     Route: 042
     Dates: start: 20050911, end: 20050913

REACTIONS (6)
  - CACHEXIA [None]
  - CONFUSIONAL STATE [None]
  - MALIGNANT NEOPLASM PROGRESSION [None]
  - PHARMACEUTICAL PRODUCT COMPLAINT [None]
  - POOR QUALITY DRUG ADMINISTERED [None]
  - STAPHYLOCOCCAL BACTERAEMIA [None]
